FAERS Safety Report 9778871 (Version 1)
Quarter: 2013Q4

REPORT INFORMATION
  Report Type: Report from Study
  Country: US (occurrence: US)
  Receive Date: 20131223
  Receipt Date: 20131223
  Transmission Date: 20140711
  Serious: Yes (Hospitalization)
  Sender: FDA-Public Use
  Company Number: US-US-EMD SERONO, INC.-7258293

PATIENT
  Age: 48 Year
  Sex: 0
  Weight: 149 kg

DRUGS (1)
  1. REBIF [Suspect]
     Indication: MULTIPLE SCLEROSIS
     Route: 058
     Dates: start: 20131126

REACTIONS (6)
  - Oedema peripheral [Recovering/Resolving]
  - Oedema peripheral [Recovering/Resolving]
  - Suicidal ideation [Recovered/Resolved]
  - Pain [Recovering/Resolving]
  - Depression [Unknown]
  - Rhinorrhoea [Not Recovered/Not Resolved]
